FAERS Safety Report 16959975 (Version 2)
Quarter: 2019Q4

REPORT INFORMATION
  Report Type: Spontaneous
  Country: US (occurrence: US)
  Receive Date: 20191025
  Receipt Date: 20191031
  Transmission Date: 20200122
  Serious: No
  Sender: FDA-Public Use
  Company Number: US-SUNOVION-2019SUN004371

PATIENT
  Age: 72 Year
  Sex: Female
  Weight: 71.66 kg

DRUGS (9)
  1. LEVALBUTEROL. [Concomitant]
     Active Substance: LEVALBUTEROL
     Dosage: UNK, BID
  2. METOPROLOL. [Concomitant]
     Active Substance: METOPROLOL
     Indication: BLOOD PRESSURE ABNORMAL
     Dosage: 200 MG
  3. ALBUTEROL. [Concomitant]
     Active Substance: ALBUTEROL
  4. PREDNISONE. [Concomitant]
     Active Substance: PREDNISONE
  5. METOPROLOL. [Concomitant]
     Active Substance: METOPROLOL
     Dosage: 50 UNK
  6. METOPROLOL. [Concomitant]
     Active Substance: METOPROLOL
     Dosage: 25-50 MG
     Route: 048
  7. BROVANA [Suspect]
     Active Substance: ARFORMOTEROL TARTRATE
     Indication: CHRONIC OBSTRUCTIVE PULMONARY DISEASE
     Dosage: 15 ?G/ 2 ML
     Route: 055
     Dates: start: 201908
  8. METOPROLOL. [Concomitant]
     Active Substance: METOPROLOL
     Dosage: UNK
  9. LEVALBUTEROL. [Concomitant]
     Active Substance: LEVALBUTEROL
     Dosage: UNK

REACTIONS (4)
  - Weight decreased [Unknown]
  - Chronic obstructive pulmonary disease [Unknown]
  - Eating disorder [Unknown]
  - Hypotension [Unknown]
